FAERS Safety Report 12249156 (Version 2)
Quarter: 2016Q2

REPORT INFORMATION
  Report Type: Report from Study
  Country: US (occurrence: US)
  Receive Date: 20160408
  Receipt Date: 20160505
  Transmission Date: 20160815
  Serious: Yes (Death)
  Sender: FDA-Public Use
  Company Number: US-PFIZER INC-2016198222

PATIENT
  Age: 16 Year
  Sex: Female

DRUGS (3)
  1. SULFISOXAZOLE [Concomitant]
     Active Substance: SULFISOXAZOLE
     Indication: PYELONEPHRITIS
     Dosage: UNK
  2. TETRACYCLINE HCL [Suspect]
     Active Substance: TETRACYCLINE HYDROCHLORIDE
     Indication: PYELONEPHRITIS
     Dosage: UNK
  3. TETRACYCLINE HCL [Suspect]
     Active Substance: TETRACYCLINE HYDROCHLORIDE
     Dosage: HIGH DOSE (AVERAGE 2.4 G DAILY (RANGE 1.0 TO 3.5 G)
     Route: 042

REACTIONS (1)
  - Liver disorder [Fatal]
